FAERS Safety Report 9675406 (Version 1)
Quarter: 2013Q4

REPORT INFORMATION
  Report Type: Spontaneous
  Country: FR (occurrence: FR)
  Receive Date: 20131107
  Receipt Date: 20131107
  Transmission Date: 20140711
  Serious: Yes (Hospitalization)
  Sender: FDA-Public Use
  Company Number: FR-SA-2013SA112893

PATIENT
  Age: 53 Year
  Sex: Female

DRUGS (2)
  1. EVOLTRA [Suspect]
     Indication: LEUKAEMIA
     Dosage: (5X66 MG)
     Route: 042
     Dates: start: 20111001, end: 20111005
  2. CYTARABINE [Suspect]
     Indication: LEUKAEMIA
     Dosage: (5X1650 MG)
     Route: 065
     Dates: start: 20111001, end: 20111005

REACTIONS (1)
  - Mixed liver injury [Recovered/Resolved]
